FAERS Safety Report 22221552 (Version 1)
Quarter: 2023Q2

REPORT INFORMATION
  Report Type: Spontaneous
  Country: None (occurrence: CN)
  Receive Date: 20230418
  Receipt Date: 20230418
  Transmission Date: 20230722
  Serious: Yes (Other)
  Sender: FDA-Public Use
  Company Number: CN-Jiangsu Hengrui Medicine Co., Ltd.-2140491

PATIENT
  Age: 58 Year
  Sex: Male
  Weight: 58 kg

DRUGS (3)
  1. DOCETAXEL [Suspect]
     Active Substance: DOCETAXEL
     Indication: Lung adenocarcinoma
     Route: 041
     Dates: start: 20230208, end: 20230208
  2. TISLELIZUMAB [Suspect]
     Active Substance: TISLELIZUMAB
     Route: 041
     Dates: start: 20230208, end: 20230208
  3. NEDAPLATIN [Suspect]
     Active Substance: NEDAPLATIN
     Route: 041
     Dates: start: 20230208, end: 20230208

REACTIONS (4)
  - Rash [Recovering/Resolving]
  - Pruritus [Recovering/Resolving]
  - Rash vesicular [Recovering/Resolving]
  - Mouth ulceration [Recovering/Resolving]

NARRATIVE: CASE EVENT DATE: 20230216
